FAERS Safety Report 11673393 (Version 1)
Quarter: 2015Q4

REPORT INFORMATION
  Report Type: Spontaneous
  Country: US (occurrence: US)
  Receive Date: 20151028
  Receipt Date: 20151028
  Transmission Date: 20160304
  Serious: No
  Sender: FDA-Public Use
  Company Number: PHEH2015US009423

PATIENT
  Sex: Male

DRUGS (1)
  1. FOCALIN XR [Suspect]
     Active Substance: DEXMETHYLPHENIDATE HYDROCHLORIDE
     Indication: PRODUCT USED FOR UNKNOWN INDICATION
     Dosage: 25 MG, UNK
     Route: 065

REACTIONS (8)
  - Abnormal behaviour [Unknown]
  - Drug ineffective [Unknown]
  - Dysphagia [Unknown]
  - Dental caries [Unknown]
  - Decreased appetite [Unknown]
  - Product physical issue [Unknown]
  - Therapeutic response unexpected [Unknown]
  - Dysgeusia [Unknown]
